FAERS Safety Report 17916028 (Version 1)
Quarter: 2020Q2

REPORT INFORMATION
  Report Type: Spontaneous
  Country: US (occurrence: US)
  Receive Date: 20200618
  Receipt Date: 20200618
  Transmission Date: 20200714
  Serious: Yes (Hospitalization)
  Sender: FDA-Public Use
  Company Number: None

PATIENT
  Age: 75 Year
  Sex: Female

DRUGS (19)
  1. LIPITOR [Concomitant]
     Active Substance: ATORVASTATIN CALCIUM
  2. ADEMPAS [Concomitant]
     Active Substance: RIOCIGUAT
  3. ADVAIR DISKU AER [Concomitant]
  4. CALCIUM CIT/VIT D [Concomitant]
  5. GARLIC. [Concomitant]
     Active Substance: GARLIC
  6. ORENITRAM [Concomitant]
     Active Substance: TREPROSTINIL
  7. AMBRISENTAN 10MG TAB [Suspect]
     Active Substance: AMBRISENTAN
     Indication: PULMONARY ARTERIAL HYPERTENSION
     Route: 048
     Dates: start: 20180427
  8. ASPIRIN. [Concomitant]
     Active Substance: ASPIRIN
  9. RANITIDINE. [Concomitant]
     Active Substance: RANITIDINE
  10. SPRIVIRA [Concomitant]
  11. ALEVE [Concomitant]
     Active Substance: NAPROXEN SODIUM
  12. OXYBUTYNIN. [Concomitant]
     Active Substance: OXYBUTYNIN CHLORIDE
  13. SERTRALINE [Concomitant]
     Active Substance: SERTRALINE HYDROCHLORIDE
  14. FLONASE ALGY [Concomitant]
  15. MULTIVITAMIN [Concomitant]
     Active Substance: VITAMINS
  16. RALOXIFENE. [Concomitant]
     Active Substance: RALOXIFENE
  17. GINGKO BILOB [Concomitant]
  18. FISH OIL [Concomitant]
     Active Substance: FISH OIL
  19. GLUCOSAMINE [Concomitant]
     Active Substance: GLUCOSAMINE

REACTIONS (2)
  - Pneumonia [None]
  - Fluid retention [None]

NARRATIVE: CASE EVENT DATE: 202005
